FAERS Safety Report 17531735 (Version 1)
Quarter: 2020Q1

REPORT INFORMATION
  Report Type: Spontaneous
  Country: US (occurrence: US)
  Receive Date: 20200304
  Receipt Date: 20200304
  Transmission Date: 20200409
  Serious: No
  Sender: FDA-Public Use
  Company Number: None

PATIENT
  Age: 63 Year
  Sex: Female

DRUGS (1)
  1. IBRANCE [Suspect]
     Active Substance: PALBOCICLIB
     Route: 048
     Dates: start: 201903

REACTIONS (5)
  - Fatigue [None]
  - Stomatitis [None]
  - Nasopharyngitis [None]
  - Productive cough [None]
  - Lacrimation increased [None]

NARRATIVE: CASE EVENT DATE: 20200212
